FAERS Safety Report 9407127 (Version 1)
Quarter: 2013Q3

REPORT INFORMATION
  Report Type: Spontaneous
  Country: DE (occurrence: DE)
  Receive Date: 20130718
  Receipt Date: 20130718
  Transmission Date: 20140515
  Serious: Yes (Hospitalization)
  Sender: FDA-Public Use
  Company Number: DE-JNJFOC-20130706733

PATIENT
  Age: 57 Year
  Sex: Male
  Weight: 121 kg

DRUGS (4)
  1. XARELTO [Suspect]
     Indication: ATRIAL FIBRILLATION
     Route: 048
  2. XARELTO [Suspect]
     Indication: CEREBROVASCULAR ACCIDENT PROPHYLAXIS
     Route: 048
  3. MORPHINE [Concomitant]
     Indication: RIB FRACTURE
     Route: 058
  4. TILIDIN COMP [Concomitant]
     Indication: RIB FRACTURE
     Route: 065

REACTIONS (3)
  - Infection [Recovering/Resolving]
  - Haematoma [Recovering/Resolving]
  - Fall [Recovering/Resolving]
